FAERS Safety Report 18792656 (Version 1)
Quarter: 2021Q1

REPORT INFORMATION
  Report Type: Spontaneous
  Country: US (occurrence: US)
  Receive Date: 20210127
  Receipt Date: 20210127
  Transmission Date: 20210419
  Serious: No
  Sender: FDA-Public Use
  Company Number: US-ALLERGAN-2016331US

PATIENT
  Age: 72 Year
  Sex: Female

DRUGS (6)
  1. ALLEGRA [Concomitant]
     Active Substance: FEXOFENADINE HYDROCHLORIDE
     Indication: NASAL DECONGESTION THERAPY
     Dosage: UNK
  2. NORCO [Concomitant]
     Active Substance: ACETAMINOPHEN\HYDROCODONE BITARTRATE
     Dosage: 0.05 MG
  3. ALORA [Suspect]
     Active Substance: ESTRADIOL
     Indication: OESTROGEN REPLACEMENT THERAPY
     Dosage: UNK UNK, BI?WEEKLY
     Route: 062
  4. ESTRADERM [Concomitant]
     Active Substance: ESTRADIOL
     Indication: HORMONE REPLACEMENT THERAPY
     Route: 062
  5. SUDAFED [Concomitant]
     Active Substance: PSEUDOEPHEDRINE HYDROCHLORIDE
     Dosage: UNK
  6. VALIUM [Concomitant]
     Active Substance: DIAZEPAM
     Indication: PAIN
     Dosage: 2.5 MG, PRN
     Route: 048

REACTIONS (8)
  - Hot flush [Not Recovered/Not Resolved]
  - Skin burning sensation [Unknown]
  - Muscle spasms [Unknown]
  - Pain of skin [Not Recovered/Not Resolved]
  - Wrong technique in product usage process [Unknown]
  - Hypersensitivity [Unknown]
  - Hyperhidrosis [Not Recovered/Not Resolved]
  - Abdominal distension [Not Recovered/Not Resolved]
